FAERS Safety Report 15597364 (Version 1)
Quarter: 2018Q4

REPORT INFORMATION
  Report Type: Spontaneous
  Country: GB (occurrence: GB)
  Receive Date: 20181108
  Receipt Date: 20181108
  Transmission Date: 20190205
  Serious: Yes (Other)
  Sender: FDA-Public Use
  Company Number: GB-ROCHE-2211160

PATIENT
  Sex: Female

DRUGS (4)
  1. ROACTEMRA [Suspect]
     Active Substance: TOCILIZUMAB
     Dosage: 75% OF ORIGINAL DOSE.
     Route: 065
  2. FLUCONAZOLE. [Concomitant]
     Active Substance: FLUCONAZOLE
     Indication: FUNGAL INFECTION
     Dosage: FOUR 4 WEEKS.
     Route: 065
  3. ROACTEMRA [Suspect]
     Active Substance: TOCILIZUMAB
     Indication: RHEUMATOID ARTHRITIS
     Dosage: FULL CORRECT DOSE.
     Route: 065
  4. ROACTEMRA [Suspect]
     Active Substance: TOCILIZUMAB
     Dosage: 50% OF ORIGINAL DOSE REDUCED DOSE DUE EVENT ILL.
     Route: 065

REACTIONS (4)
  - Weight increased [Unknown]
  - Myocardial infarction [Unknown]
  - Feeling abnormal [Unknown]
  - Malaise [Unknown]
